FAERS Safety Report 9928210 (Version 2)
Quarter: 2014Q2

REPORT INFORMATION
  Report Type: Report from Study
  Country: US (occurrence: US)
  Receive Date: 20140227
  Receipt Date: 20140611
  Transmission Date: 20141212
  Serious: Yes (Life-Threatening, Hospitalization)
  Sender: FDA-Public Use
  Company Number: US-CELGENEUS-163-22393-14023555

PATIENT
  Age: 73 Year
  Sex: Male
  Weight: 82.9 kg

DRUGS (3)
  1. ISTODAX [Suspect]
     Indication: MYCOSIS FUNGOIDES
     Dosage: 10 MILLIGRAM/SQ. METER
     Route: 041
     Dates: start: 20140210, end: 20140217
  2. REVLIMID [Suspect]
     Indication: MYCOSIS FUNGOIDES
     Dosage: 25 MILLIGRAM
     Route: 048
     Dates: start: 20140210, end: 20140224
  3. COUMADIN [Concomitant]
     Indication: ATRIAL FIBRILLATION
     Route: 065
     Dates: end: 20140219

REACTIONS (3)
  - Dehydration [Recovered/Resolved]
  - Anaemia [Recovered/Resolved]
  - International normalised ratio increased [Recovered/Resolved]
